FAERS Safety Report 8033440-2 (Version None)
Quarter: 2012Q1

REPORT INFORMATION
  Report Type: 
  Country: None (occurrence: None)
  Receive Date: 20120110
  Receipt Date: 20120106
  Transmission Date: 20120608
  Serious: Yes (Hospitalization)
  Sender: FDA-Public Use
  Company Number: AT-ROCHE-1028494

PATIENT
  Age: 56 Year
  Sex: Female

DRUGS (5)
  1. ACTEMRA [Suspect]
     Indication: POLYARTHRITIS
     Route: 042
     Dates: start: 20090109, end: 20111209
  2. LEVOTHYROXINE SODIUM [Concomitant]
     Indication: HYPOTHYROIDISM
     Route: 048
  3. VOLTAREN [Concomitant]
     Indication: ARTHRALGIA
     Route: 048
  4. MUNDIDOL RETARD [Concomitant]
     Indication: ARTHRALGIA
     Route: 048
  5. PANTOPRAZOLE SODIUM [Concomitant]
     Indication: GASTROOESOPHAGEAL REFLUX DISEASE
     Route: 048

REACTIONS (1)
  - LARYNGEAL OEDEMA [None]
